FAERS Safety Report 15081303 (Version 1)
Quarter: 2018Q2

REPORT INFORMATION
  Report Type: Spontaneous
  Country: US (occurrence: US)
  Receive Date: 20180607
  Receipt Date: 20180607
  Transmission Date: 20180711
  Serious: Yes (Life-Threatening, Hospitalization, Other)
  Sender: FDA-Public Use
  Company Number: None

PATIENT
  Age: 63 Year
  Sex: Female
  Weight: 48.08 kg

DRUGS (4)
  1. PANTOPRAZOL GENERIC PROTONIX [Concomitant]
  2. CAPECITABINE 500MG TAB [Suspect]
     Active Substance: CAPECITABINE
     Indication: RECTAL CANCER
     Dosage: ?          QUANTITY:9 DF DOSAGE FORM;?
     Route: 048
     Dates: start: 20180416, end: 20180422
  3. METOCLOPRAMIDE/REGLAN GENERIC [Concomitant]
  4. ONE A DAY VITAMINS [Concomitant]

REACTIONS (4)
  - Swelling [None]
  - Vomiting [None]
  - Abdominal pain [None]
  - Pain [None]

NARRATIVE: CASE EVENT DATE: 20180402
